FAERS Safety Report 18583579 (Version 2)
Quarter: 2020Q4

REPORT INFORMATION
  Report Type: Spontaneous
  Country: FR (occurrence: FR)
  Receive Date: 20201207
  Receipt Date: 20201207
  Transmission Date: 20210114
  Serious: Yes (Hospitalization)
  Sender: FDA-Public Use
  Company Number: FR-ASTRAZENECA-2020SF61350

PATIENT
  Age: 76 Year
  Sex: Female
  Weight: 88.2 kg

DRUGS (6)
  1. FUROSEMIDE. [Concomitant]
     Active Substance: FUROSEMIDE
     Route: 065
  2. ELIQUIS [Suspect]
     Active Substance: APIXABAN
     Indication: ATRIAL FIBRILLATION
     Route: 048
     Dates: start: 20200924, end: 20201003
  3. METRONIDAZOLE. [Suspect]
     Active Substance: METRONIDAZOLE
     Indication: ARTHRITIS INFECTIVE
     Route: 048
     Dates: start: 202008, end: 20201003
  4. TYGACIL [Suspect]
     Active Substance: TIGECYCLINE
     Indication: ARTHRITIS INFECTIVE
     Route: 042
     Dates: start: 20200727, end: 20201002
  5. CORTANCYL [Concomitant]
     Active Substance: PREDNISONE
     Route: 065
  6. MOPRAL [Suspect]
     Active Substance: OMEPRAZOLE
     Indication: PRODUCT USED FOR UNKNOWN INDICATION
     Route: 048
     Dates: start: 2019, end: 202010

REACTIONS (3)
  - Hemiparesis [Recovering/Resolving]
  - Encephalopathy [Recovering/Resolving]
  - Aphasia [Recovering/Resolving]

NARRATIVE: CASE EVENT DATE: 202010
